FAERS Safety Report 7442829-1 (Version None)
Quarter: 2011Q2

REPORT INFORMATION
  Report Type: 
  Country: None (occurrence: None)
  Receive Date: 20110425
  Receipt Date: 20110425
  Transmission Date: 20111010
  Serious: Yes (Other)
  Sender: FDA-Public Use
  Company Number: None

PATIENT
  Age: 65 Year
  Sex: Male
  Weight: 164 kg

DRUGS (7)
  1. LIDOCAINE [Concomitant]
  2. PHENYLEPHRINE HCL [Concomitant]
  3. DECADRON [Concomitant]
  4. OFIRMEV [Suspect]
     Indication: ANALGESIC THERAPY
     Dosage: 1000MG ONE TIME IV
     Route: 042
     Dates: start: 20110317, end: 20110317
  5. SUFENTA PRESERVATIVE FREE [Concomitant]
  6. PROPOFOL [Concomitant]
  7. ZEMURON [Concomitant]

REACTIONS (1)
  - BLOOD PRESSURE DECREASED [None]
